FAERS Safety Report 6890752-3 (Version None)
Quarter: 2010Q3

REPORT INFORMATION
  Report Type: 
  Country: None (occurrence: None)
  Receive Date: 20100731
  Receipt Date: 20090318
  Transmission Date: 20110219
  Serious: No
  Sender: FDA-Public Use
  Company Number: US-PFIZER INC-2009153437

PATIENT
  Sex: Male
  Weight: 70.76 kg

DRUGS (13)
  1. LIPITOR [Suspect]
     Indication: BLOOD CHOLESTEROL INCREASED
     Dosage: 40 MG, 1X/DAY
     Route: 048
     Dates: start: 20080903, end: 20081230
  2. PLAVIX [Concomitant]
     Dosage: UNK
  3. PANTOPRAZOLE [Concomitant]
     Dosage: UNK
  4. BISOPROLOL [Concomitant]
     Dosage: UNK
  5. ACETYLSALICYLIC ACID [Concomitant]
     Dosage: UNK
  6. DRUG, UNSPECIFIED [Concomitant]
     Dosage: UNK
  7. ALLOPURINOL [Concomitant]
     Dosage: UNK
  8. FISH OIL [Concomitant]
     Dosage: UNK
  9. MULTI-VITAMINS [Concomitant]
     Dosage: UNK
  10. GABAPENTIN [Concomitant]
     Dosage: 100 MG, 1X/DAY
  11. SENSIPAR [Concomitant]
     Dosage: 30 MG, 1X/DAY
  12. SCOPOLAMINE HYDROCHLORIDE [Concomitant]
     Dosage: UNK
  13. TRANDATE [Concomitant]
     Dosage: UNK

REACTIONS (2)
  - BREAST PAIN [None]
  - BREAST SWELLING [None]
